FAERS Safety Report 15646066 (Version 2)
Quarter: 2019Q2

REPORT INFORMATION
  Report Type: Spontaneous
  Country: US (occurrence: US)
  Receive Date: 20181121
  Receipt Date: 20190504
  Transmission Date: 20190711
  Serious: Yes (Other)
  Sender: FDA-Public Use
  Company Number: US-SUN PHARMACEUTICAL INDUSTRIES LTD-2018R1-191545

PATIENT

DRUGS (1)
  1. QUETIAPINE. [Suspect]
     Active Substance: QUETIAPINE
     Indication: PRODUCT USED FOR UNKNOWN INDICATION
     Dosage: 14.7 MG/KG MAXIMUM AMOUNT PER HISTORY
     Route: 048

REACTIONS (4)
  - Tachycardia [Unknown]
  - Hypertension [Unknown]
  - Respiratory depression [Unknown]
  - Somnolence [Unknown]
